FAERS Safety Report 10405751 (Version 1)
Quarter: 2014Q3

REPORT INFORMATION
  Report Type: Spontaneous
  Country: US (occurrence: None)
  Receive Date: 20140821
  Receipt Date: 20140821
  Transmission Date: 20150326
  Serious: Yes (Other)
  Sender: FDA-Public Use
  Company Number: AUR-APL-2014-08867

PATIENT
  Age: 74 Year
  Sex: Female
  Weight: 92.1 kg

DRUGS (8)
  1. ATENOLOL 25 MG (ATENOLOL) UNKNOWN, 25MG [Suspect]
     Active Substance: ATENOLOL
     Indication: CARDIAC DISORDER
     Route: 048
  2. BRILINTA [Suspect]
     Active Substance: TICAGRELOR
     Indication: CARDIAC DISORDER
     Route: 048
     Dates: start: 201403
  3. ACETAMINOPHEN (PARACETAMOL) [Concomitant]
     Active Substance: ACETAMINOPHEN
  4. GLIPIZIDE (GLIPIZIDE) [Concomitant]
     Active Substance: GLIPIZIDE
  5. LISINOPRIL TABLETS USP 10 MG (LISINOPRIL) TABLET, 10MG [Suspect]
     Active Substance: LISINOPRIL
     Indication: PRODUCT USED FOR UNKNOWN INDICATION
     Route: 048
  6. OMEPRAZOLE (OMEPRAZOLE) [Suspect]
     Active Substance: OMEPRAZOLE
     Indication: GASTRIC DISORDER
     Route: 048
  7. CRESTOR [Suspect]
     Active Substance: ROSUVASTATIN CALCIUM
     Indication: CARDIAC DISORDER
     Route: 048
     Dates: start: 201403
  8. ASPIRIN (ACETYLSALICYLIC ACID) [Concomitant]
     Active Substance: ASPIRIN

REACTIONS (5)
  - Myocardial infarction [None]
  - Malaise [None]
  - Body height decreased [None]
  - Epistaxis [None]
  - Blood pressure increased [None]

NARRATIVE: CASE EVENT DATE: 20140727
